FAERS Safety Report 7757544-4 (Version None)
Quarter: 2011Q3

REPORT INFORMATION
  Report Type: 
  Country: None (occurrence: None)
  Receive Date: 20110916
  Receipt Date: 20110912
  Transmission Date: 20111222
  Serious: Yes (Life-Threatening, Hospitalization)
  Sender: FDA-Public Use
  Company Number: US-B.I. PHARMACEUTICALS,INC./RIDGEFIELD-2011-BP-19790BP

PATIENT
  Sex: Male

DRUGS (14)
  1. METFORMIN HCL [Concomitant]
  2. SIMVASTATIN [Concomitant]
  3. CAPTOPRIL [Concomitant]
     Indication: HYPERTENSION
     Dosage: 300 MG
  4. LAMICTAL [Concomitant]
     Indication: CONVULSION
     Dosage: 200 MG
  5. NORMODYNE [Concomitant]
     Dosage: 600 MG
  6. ASPIRIN [Concomitant]
     Dosage: 81 MG
  7. PRADAXA [Suspect]
     Indication: ATRIAL FIBRILLATION
     Dosage: 300 MG
     Route: 048
     Dates: start: 20110302, end: 20110516
  8. VITAMIN C/E/B COMPLEX [Concomitant]
  9. COREG [Concomitant]
     Dosage: 18.75 MG
  10. NORVASC [Concomitant]
     Indication: HYPERTENSION
     Dosage: 5 MG
  11. CARBATROL [Concomitant]
     Indication: CONVULSION
     Dosage: 6.25 MG
  12. PRAVASTATIN [Concomitant]
     Indication: BLOOD CHOLESTEROL INCREASED
  13. LISINOPRIL [Concomitant]
     Indication: HYPERTENSION
     Dosage: 20 MG
  14. KEPPRA [Concomitant]
     Indication: CONVULSION
     Dosage: 500 MG

REACTIONS (5)
  - HAEMOPTYSIS [None]
  - PULMONARY HAEMORRHAGE [None]
  - HYPOXIA [None]
  - PRESYNCOPE [None]
  - LUNG INFILTRATION [None]
